FAERS Safety Report 4362244-7 (Version None)
Quarter: 2004Q2

REPORT INFORMATION
  Report Type: 
  Country: None (occurrence: None)
  Receive Date: 20040517
  Receipt Date: 20040507
  Transmission Date: 20050107
  Serious: Yes (Hospitalization)
  Sender: FDA-Public Use
  Company Number: US-JNJFOC-20040501858

PATIENT
  Age: 70 Year
  Sex: Female
  Weight: 68.0396 kg

DRUGS (6)
  1. INFLIXIMAB (INFLIXIMAB, RECOMBINANT) LYOPHILIZED POWDER [Suspect]
     Indication: RHEUMATOID ARTHRITIS
     Dosage: INTRAVENOUS
     Route: 042
     Dates: start: 20020115, end: 20030416
  2. METHOTREXATE [Concomitant]
  3. FOLIC ACID [Concomitant]
  4. CALCIUM (CALCIUM) [Concomitant]
  5. PREDNISONE [Concomitant]
  6. METOPROLOL (METOPROLOL) [Concomitant]

REACTIONS (10)
  - ANAEMIA OF CHRONIC DISEASE [None]
  - EMPYEMA [None]
  - FATIGUE [None]
  - FIBROSIS [None]
  - GRANULOMA [None]
  - PLEURAL EFFUSION [None]
  - PLEURISY [None]
  - PNEUMONITIS [None]
  - PYREXIA [None]
  - RHEUMATOID LUNG [None]
